FAERS Safety Report 16097436 (Version 1)
Quarter: 2019Q1

REPORT INFORMATION
  Report Type: Spontaneous
  Country: JP (occurrence: JP)
  Receive Date: 20190320
  Receipt Date: 20190320
  Transmission Date: 20190418
  Serious: Yes (Other)
  Sender: FDA-Public Use
  Company Number: JP-PFIZER INC-2019118160

PATIENT
  Age: 7 Decade
  Sex: Female

DRUGS (4)
  1. LYRICA [Suspect]
     Active Substance: PREGABALIN
  2. FUROSEMIDE. [Suspect]
     Active Substance: FUROSEMIDE
  3. CELECOX [Suspect]
     Active Substance: CELECOXIB
  4. LONSURF [Suspect]
     Active Substance: TIPIRACIL HYDROCHLORIDE\TRIFLURIDINE

REACTIONS (1)
  - Interstitial lung disease [Unknown]
